FAERS Safety Report 6037312-4 (Version None)
Quarter: 2009Q1

REPORT INFORMATION
  Report Type: 
  Country: None (occurrence: None)
  Receive Date: 20090114
  Receipt Date: 20090106
  Transmission Date: 20090719
  Serious: Yes (Hospitalization)
  Sender: FDA-Public Use
  Company Number: PHHY2009MX00973

PATIENT
  Age: 58 Year
  Sex: Female

DRUGS (2)
  1. DIOVAN [Suspect]
     Indication: HYPERTENSION
     Dosage: 1 TABLET (80 MG) PER DAY
     Route: 048
     Dates: start: 20031201
  2. HYGROTON [Concomitant]
     Dosage: 50 MG 1 TABLET PER DAY
     Route: 048

REACTIONS (7)
  - BLOOD CHOLESTEROL INCREASED [None]
  - BLOOD TRIGLYCERIDES INCREASED [None]
  - DISCOMFORT [None]
  - HAEMATOCRIT INCREASED [None]
  - HEADACHE [None]
  - HYPERTENSION [None]
  - PHOSPHENES [None]
